FAERS Safety Report 8107119-2 (Version None)
Quarter: 2012Q1

REPORT INFORMATION
  Report Type: 
  Country: None (occurrence: None)
  Receive Date: 20120202
  Receipt Date: 20120131
  Transmission Date: 20120608
  Serious: Yes (Other)
  Sender: FDA-Public Use
  Company Number: US-VERTEX PHARMACEUTICALS INC.-AE-2012-001559

PATIENT
  Age: 58 Year
  Sex: Male
  Weight: 95.3 kg

DRUGS (18)
  1. INCIVEK [Suspect]
     Indication: HEPATITIS C
     Dates: start: 20111004
  2. OXYCODONE HCL [Concomitant]
     Route: 048
  3. DIAZEPAM [Concomitant]
     Route: 048
  4. DETROL [Concomitant]
  5. ADVAIR DISKUS 100/50 [Concomitant]
  6. COMBIVENT [Concomitant]
  7. RIBAVIRIN [Concomitant]
     Indication: HEPATITIS C
     Dates: start: 20111004
  8. LISINOPRIL [Concomitant]
  9. NITROGLYCERIN [Concomitant]
  10. ASPIRIN [Concomitant]
  11. CENTRUM [Concomitant]
     Route: 048
  12. NEXIUM [Concomitant]
  13. NORCO [Concomitant]
  14. PEGASYS [Concomitant]
     Indication: HEPATITIS C
     Route: 058
     Dates: start: 20111004
  15. VIAGRA [Concomitant]
     Route: 048
  16. ZYPREXA [Concomitant]
     Route: 048
  17. CITALOPRAM HYDROBROMIDE [Concomitant]
     Route: 048
  18. METOPROLOL SUCCINATE [Concomitant]

REACTIONS (1)
  - HAEMORRHAGE [None]
